FAERS Safety Report 4527682-8 (Version None)
Quarter: 2004Q4

REPORT INFORMATION
  Report Type: 
  Country: None (occurrence: None)
  Receive Date: 20041215
  Receipt Date: 20041115
  Transmission Date: 20050328
  Serious: Yes (Hospitalization, Disabling, Other)
  Sender: FDA-Public Use
  Company Number: US-MERCK-0411USA02728

PATIENT
  Age: 80 Year
  Sex: Male
  Weight: 70 kg

DRUGS (9)
  1. ZOCOR [Suspect]
     Indication: BLOOD CHOLESTEROL INCREASED
     Route: 048
     Dates: start: 19980101, end: 20041031
  2. ZOCOR [Suspect]
     Indication: HYPERCHOLESTEROLAEMIA
     Route: 048
     Dates: start: 19980101, end: 20041031
  3. GEODON [Concomitant]
     Route: 065
  4. TOPROL-XL [Concomitant]
     Route: 065
  5. IMDUR [Concomitant]
     Route: 065
  6. PLAVIX [Concomitant]
     Route: 065
  7. ASPIRIN [Concomitant]
     Route: 065
  8. ARICEPT [Concomitant]
     Route: 065
  9. LASIX [Concomitant]
     Route: 065

REACTIONS (8)
  - ADVERSE EVENT [None]
  - BALANCE DISORDER [None]
  - FALL [None]
  - JOINT STIFFNESS [None]
  - RENAL FAILURE CHRONIC [None]
  - RHABDOMYOLYSIS [None]
  - VOMITING [None]
  - WEIGHT DECREASED [None]
